FAERS Safety Report 10340780 (Version 2)
Quarter: 2014Q3

REPORT INFORMATION
  Report Type: Spontaneous
  Country: NO (occurrence: NO)
  Receive Date: 20140724
  Receipt Date: 20140724
  Transmission Date: 20150326
  Serious: Yes (Other)
  Sender: FDA-Public Use
  Company Number: CHPA2014NO009652

PATIENT
  Sex: Female

DRUGS (1)
  1. NICOTINELL [Suspect]
     Active Substance: NICOTINE
     Dosage: UP TO 48 DF, QD
     Dates: start: 2007, end: 2014

REACTIONS (2)
  - Drug dependence [Unknown]
  - Incorrect drug administration duration [Unknown]
